FAERS Safety Report 15430246 (Version 1)
Quarter: 2018Q3

REPORT INFORMATION
  Report Type: Other
  Country: JP (occurrence: JP)
  Receive Date: 20180926
  Receipt Date: 20180926
  Transmission Date: 20181010
  Serious: Yes (Other)
  Sender: FDA-Public Use
  Company Number: JP-ACTELION-A-CH2018-179183

PATIENT
  Age: 15 Day
  Sex: Female

DRUGS (3)
  1. NITRIC OXIDE. [Concomitant]
     Active Substance: NITRIC OXIDE
  2. BOSENTAN. [Suspect]
     Active Substance: BOSENTAN
     Indication: PERSISTENT FOETAL CIRCULATION
     Route: 048
  3. SILDENAFIL. [Concomitant]
     Active Substance: SILDENAFIL

REACTIONS (2)
  - Pyloric stenosis [Recovered/Resolved]
  - Vomiting [Recovered/Resolved]
